FAERS Safety Report 4956230-3 (Version None)
Quarter: 2006Q1

REPORT INFORMATION
  Report Type: 
  Country: None (occurrence: None)
  Receive Date: 20060323
  Receipt Date: 20060314
  Transmission Date: 20060701
  Serious: Yes (Hospitalization, Other)
  Sender: FDA-Public Use
  Company Number: 2006-03-0772

PATIENT
  Age: 22 Year
  Sex: Male

DRUGS (1)
  1. CELESTONE [Suspect]
     Indication: ECZEMA
     Dosage: 2 MG QD ORAL
     Route: 048
     Dates: start: 20010115, end: 20060123

REACTIONS (3)
  - CATARACT [None]
  - CUSHING'S SYNDROME [None]
  - DRUG INEFFECTIVE [None]
